FAERS Safety Report 8254733-X (Version None)
Quarter: 2012Q2

REPORT INFORMATION
  Report Type: 
  Country: None (occurrence: None)
  Receive Date: 20120403
  Receipt Date: 20120319
  Transmission Date: 20120825
  Serious: Yes (Other)
  Sender: FDA-Public Use
  Company Number: PHHY2012JP025016

PATIENT
  Sex: Male

DRUGS (1)
  1. NEORAL [Suspect]
     Indication: APLASTIC ANAEMIA
     Dosage: UNK UKN, UNK
     Route: 048

REACTIONS (4)
  - DERMATITIS ATOPIC [None]
  - BLOOD IMMUNOGLOBULIN E INCREASED [None]
  - IMMUNE SYSTEM DISORDER [None]
  - BLOOD IMMUNOGLOBULIN G INCREASED [None]
